FAERS Safety Report 14282681 (Version 5)
Quarter: 2018Q2

REPORT INFORMATION
  Report Type: Spontaneous
  Country: US (occurrence: US)
  Receive Date: 20171213
  Receipt Date: 20180625
  Transmission Date: 20180711
  Serious: Yes (Other)
  Sender: FDA-Public Use
  Company Number: US-PFIZER INC-2017531184

PATIENT
  Age: 57 Year
  Sex: Male

DRUGS (3)
  1. XELJANZ XR [Suspect]
     Active Substance: TOFACITINIB CITRATE
     Dosage: 11 MG, UNK
     Dates: start: 2018
  2. XELJANZ XR [Suspect]
     Active Substance: TOFACITINIB CITRATE
     Dosage: 11 MG, UNK
     Dates: start: 20171113, end: 201801
  3. XELJANZ XR [Suspect]
     Active Substance: TOFACITINIB CITRATE
     Dosage: 11 MG, UNK
     Dates: start: 20180518, end: 20180619

REACTIONS (7)
  - Rhinorrhoea [Unknown]
  - Neck mass [Unknown]
  - Arthralgia [Unknown]
  - Pollakiuria [Unknown]
  - Thrombocytopenia [Unknown]
  - Joint swelling [Unknown]
  - Nasal congestion [Unknown]

NARRATIVE: CASE EVENT DATE: 201711
